FAERS Safety Report 4335542-0 (Version None)
Quarter: 2004Q2

REPORT INFORMATION
  Report Type: 
  Country: None (occurrence: None)
  Receive Date: 20040406
  Receipt Date: 20040324
  Transmission Date: 20050107
  Serious: Yes (Hospitalization, Other)
  Sender: FDA-Public Use
  Company Number: 2004020336

PATIENT
  Sex: Male

DRUGS (4)
  1. GEODON [Suspect]
     Indication: SCHIZOPHRENIA
     Dosage: 240 MG (DAILY)
     Dates: start: 20010101, end: 20040323
  2. ZOLOFT [Suspect]
     Indication: ILL-DEFINED DISORDER
     Dosage: 200 MG
     Dates: start: 20040101
  3. AMANTADINE HCL [Suspect]
     Indication: ILL-DEFINED DISORDER
  4. HYDROXYZINE EMBONATE [Concomitant]

REACTIONS (9)
  - DIARRHOEA [None]
  - DRUG INEFFECTIVE [None]
  - ECONOMIC PROBLEM [None]
  - RASH PRURITIC [None]
  - RESTLESSNESS [None]
  - RHINORRHOEA [None]
  - SCHIZOPHRENIA [None]
  - TARDIVE DYSKINESIA [None]
  - TREMOR [None]
